FAERS Safety Report 6579254-1 (Version None)
Quarter: 2010Q1

REPORT INFORMATION
  Report Type: 
  Country: None (occurrence: None)
  Receive Date: 20100212
  Receipt Date: 20100208
  Transmission Date: 20100710
  Serious: Yes (Hospitalization)
  Sender: FDA-Public Use
  Company Number: US-ELI_LILLY_AND_COMPANY-US201002002087

PATIENT
  Sex: Female
  Weight: 64.3 kg

DRUGS (15)
  1. GEMCITABINE HCL [Suspect]
     Indication: PANCREATIC CARCINOMA
     Dosage: 30 MG/M2, UNKNOWN
     Route: 042
     Dates: start: 20090522, end: 20091223
  2. OXALIPLATIN [Suspect]
     Indication: PANCREATIC CARCINOMA
     Dosage: UNK, UNK
     Route: 042
     Dates: start: 20090701, end: 20091223
  3. LOVENOX [Concomitant]
     Indication: PORTAL VEIN THROMBOSIS
     Dates: start: 20091013
  4. METHADONE HCL [Concomitant]
  5. OXYCODONE HCL [Concomitant]
  6. PRILOSEC [Concomitant]
  7. VITAMIN D [Concomitant]
  8. MULTI-VITAMIN [Concomitant]
  9. PROMETHAZINE [Concomitant]
  10. PANCREASE MT [Concomitant]
  11. SPIRONOLACTONE [Concomitant]
  12. LASIX [Concomitant]
  13. VITAMINS WITH MINERALS [Concomitant]
  14. XELODA [Concomitant]
  15. NITROGLYCERIN [Concomitant]
     Indication: CHEST PAIN
     Dates: start: 20100107, end: 20100107

REACTIONS (5)
  - BACTERIAL SEPSIS [None]
  - HEPATIC ARTERY THROMBOSIS [None]
  - INFARCTION [None]
  - LIVER ABSCESS [None]
  - PORTAL VEIN THROMBOSIS [None]
